FAERS Safety Report 7647550-2 (Version None)
Quarter: 2011Q3

REPORT INFORMATION
  Report Type: 
  Country: None (occurrence: None)
  Receive Date: 20110801
  Receipt Date: 20110726
  Transmission Date: 20111222
  Serious: Yes (Other)
  Sender: FDA-Public Use
  Company Number: US-PFIZER INC-2011169794

PATIENT
  Sex: Male

DRUGS (2)
  1. XALATAN [Suspect]
     Indication: INTRAOCULAR PRESSURE INCREASED
     Dosage: UNK
  2. XALATAN [Suspect]
     Dosage: UNK
     Dates: start: 20110101

REACTIONS (1)
  - INTRAOCULAR PRESSURE INCREASED [None]
